FAERS Safety Report 5130440-7 (Version None)
Quarter: 2006Q4

REPORT INFORMATION
  Report Type: 
  Country: None (occurrence: None)
  Receive Date: 20061013
  Receipt Date: 20060929
  Transmission Date: 20070319
  Serious: Yes (Other)
  Sender: FDA-Public Use
  Company Number: US200610000194

PATIENT
  Age: 79 Year
  Sex: Female

DRUGS (3)
  1. FORTEO [Suspect]
     Indication: OSTEOPOROSIS
     Dates: start: 20060401
  2. ANGIOTENSIN II (ANGIOTENSIN II) [Concomitant]
  3. FORTEO [Concomitant]

REACTIONS (6)
  - BACK PAIN [None]
  - METASTATIC NEOPLASM [None]
  - MULTIPLE MYELOMA [None]
  - SACRAL PAIN [None]
  - SPINAL COMPRESSION FRACTURE [None]
  - SPINAL DISORDER [None]
